FAERS Safety Report 6372833-6 (Version None)
Quarter: 2009Q3

REPORT INFORMATION
  Report Type: 
  Country: None (occurrence: None)
  Receive Date: 20090924
  Receipt Date: 20090417
  Transmission Date: 20100115
  Serious: Yes (Other)
  Sender: FDA-Public Use
  Company Number: US-ASTRAZENECA-2008UW26766

PATIENT
  Age: 42 Year
  Sex: Male
  Weight: 74.8 kg

DRUGS (6)
  1. SEROQUEL [Suspect]
     Indication: PSYCHOTIC DISORDER
     Dosage: 200 TO 600 MG
     Route: 048
     Dates: start: 20030101
  2. SEROQUEL [Suspect]
     Indication: DEPRESSION
     Dosage: 200 TO 600 MG
     Route: 048
     Dates: start: 20030101
  3. SEROQUEL [Suspect]
     Indication: BIPOLAR DISORDER
     Dosage: 200 TO 600 MG
     Route: 048
     Dates: start: 20030101
  4. THORAZINE [Concomitant]
     Dates: start: 20030101
  5. DEPAKOTE [Concomitant]
  6. REMERON [Concomitant]

REACTIONS (6)
  - BLOOD CHOLESTEROL INCREASED [None]
  - EYE DISORDER [None]
  - HYPERGLYCAEMIA [None]
  - OBESITY [None]
  - RETINITIS [None]
  - SUICIDE ATTEMPT [None]
